FAERS Safety Report 13383963 (Version 1)
Quarter: 2017Q1

REPORT INFORMATION
  Report Type: Spontaneous
  Country: US (occurrence: US)
  Receive Date: 20170329
  Receipt Date: 20170329
  Transmission Date: 20170429
  Serious: Yes (Hospitalization)
  Sender: FDA-Public Use
  Company Number: US-009507513-1703USA011928

PATIENT
  Sex: Female

DRUGS (2)
  1. ZEPATIER [Suspect]
     Active Substance: ELBASVIR\GRAZOPREVIR
     Dosage: 100 MG, QD
     Route: 048
     Dates: start: 20170321
  2. ZEPATIER [Suspect]
     Active Substance: ELBASVIR\GRAZOPREVIR
     Indication: HEPATITIS C
     Dosage: 100 MG, QD
     Route: 048
     Dates: start: 20170227, end: 20170316

REACTIONS (1)
  - Adverse event [Recovering/Resolving]

NARRATIVE: CASE EVENT DATE: 2017
